FAERS Safety Report 22850452 (Version 9)
Quarter: 2025Q2

REPORT INFORMATION
  Report Type: Report from Study
  Country: US (occurrence: US)
  Receive Date: 20230822
  Receipt Date: 20250415
  Transmission Date: 20250717
  Serious: Yes (Other)
  Sender: TAKEDA
  Company Number: US-TAKEDA-2023TUS077512

PATIENT
  Sex: Female

DRUGS (4)
  1. TEDUGLUTIDE [Suspect]
     Active Substance: TEDUGLUTIDE
     Indication: Short-bowel syndrome
     Dosage: 0.43 MILLILITER, QD
     Dates: start: 202307
  2. TEDUGLUTIDE [Suspect]
     Active Substance: TEDUGLUTIDE
     Dosage: 4.3 MILLIGRAM, QD
  3. TEDUGLUTIDE [Suspect]
     Active Substance: TEDUGLUTIDE
     Dosage: 0.43 MILLILITER, QD
  4. TEDUGLUTIDE [Suspect]
     Active Substance: TEDUGLUTIDE

REACTIONS (12)
  - Myelodysplastic syndrome [Unknown]
  - Leukaemia [Unknown]
  - Gastrointestinal stoma output increased [Unknown]
  - Stoma site oedema [Unknown]
  - Stoma site pain [Unknown]
  - Hernia pain [Unknown]
  - Liver function test increased [Unknown]
  - Stoma prolapse [Unknown]
  - Stoma complication [Unknown]
  - Drug ineffective [Unknown]
  - Wrong technique in product usage process [Unknown]
  - Gastrointestinal stoma complication [Unknown]
